FAERS Safety Report 14329237 (Version 1)
Quarter: 2017Q4

REPORT INFORMATION
  Report Type: Report from Study
  Country: FR (occurrence: FR)
  Receive Date: 20171227
  Receipt Date: 20171227
  Transmission Date: 20180321
  Serious: Yes (Hospitalization)
  Sender: FDA-Public Use
  Company Number: FR-PFIZER INC-2017506518

PATIENT
  Age: 61 Year
  Sex: Female
  Weight: 64.8 kg

DRUGS (14)
  1. SUTENT [Suspect]
     Active Substance: SUNITINIB MALATE
     Dosage: 50 MG DAILY, 2 WEEKS ON, 1 WEEK OFF
     Dates: start: 20170522
  2. NACL [Concomitant]
     Active Substance: SODIUM CHLORIDE
     Dosage: 1 G (1 DF), 3X/DAY, IN THE MORNING, MIDDAY AND IN THE EVENING
  3. DIFFU K [Concomitant]
     Active Substance: POTASSIUM CHLORIDE
     Dosage: 1200 MG (2 DF), 3X/DAY IN THE MORNING, MIDDAY AND IN THE EVENING
  4. METFORMINE [Concomitant]
     Active Substance: METFORMIN HYDROCHLORIDE
     Dosage: 1000 MG (1 DF), 3X/DAYIN THE MORNING, MIDDAY AND IN THE EVENING
  5. SUTENT [Suspect]
     Active Substance: SUNITINIB MALATE
     Dosage: 50 MG DAILY, 2 WEEKS ON, 1 WEEK OFF
     Dates: start: 20170801
  6. SUTENT [Suspect]
     Active Substance: SUNITINIB MALATE
     Dosage: 50 MG DAILY, 2 WEEKS ON, 1 WEEK OFF
     Dates: start: 20170619
  7. LOXEN L P [Concomitant]
     Active Substance: NICARDIPINE HYDROCHLORIDE
     Dosage: 50 MG (1 DF), 2X/DAY IN THE MORNING AND IN THE EVENING
  8. TRANDOLAPRIL. [Concomitant]
     Active Substance: TRANDOLAPRIL
     Dosage: 4 MG (2 DF), 1X/DAY IN THE MORNING AND WATER RESTRICTION 750 ML/24 HOURS, TO BE INCREASED
  9. SUTENT [Suspect]
     Active Substance: SUNITINIB MALATE
     Dosage: 50 MG DAILY, 4 WEEKS ON, 2 WEEKS OFF
     Dates: start: 20170506
  10. LEVOTHYROX [Concomitant]
     Active Substance: LEVOTHYROXINE
     Dosage: 100 UG (1 DF), 1X/DAY IN THE MORNING
  11. LEVOTHYROX [Concomitant]
     Active Substance: LEVOTHYROXINE
     Dosage: 37.5 UG (1.5 DF), 1X/DAY IN THE MORNING
  12. SUTENT [Suspect]
     Active Substance: SUNITINIB MALATE
     Indication: METASTATIC RENAL CELL CARCINOMA
     Dosage: 50 MG DAILY, 4 WEEKS ON, 2 WEEKS OFF
     Dates: start: 20170401
  13. NOVORAPID [Concomitant]
     Active Substance: INSULIN ASPART
     Dosage: UNK
  14. ALPRAZOLAM. [Concomitant]
     Active Substance: ALPRAZOLAM
     Dosage: 0.25 MG, AS NEEDED

REACTIONS (5)
  - Dry mouth [Recovered/Resolved]
  - Hyponatraemia [Unknown]
  - Decreased appetite [Recovered/Resolved]
  - Rash [Recovered/Resolved]
  - Renal failure [Recovered/Resolved]

NARRATIVE: CASE EVENT DATE: 20170401
